FAERS Safety Report 23676283 (Version 1)
Quarter: 2024Q1

REPORT INFORMATION
  Report Type: Spontaneous
  Country: ES (occurrence: ES)
  Receive Date: 20240327
  Receipt Date: 20240327
  Transmission Date: 20240410
  Serious: Yes (Other)
  Sender: FDA-Public Use
  Company Number: ES-ESTEVE-2024-00541

PATIENT

DRUGS (4)
  1. PRIALT [Suspect]
     Active Substance: ZICONOTIDE ACETATE
     Indication: Product used for unknown indication
     Dosage: 0.5MCG/24H
     Route: 037
     Dates: start: 20240224
  2. PRIALT [Suspect]
     Active Substance: ZICONOTIDE ACETATE
     Dosage: 0.720MCG/24H
     Route: 037
  3. PRIALT [Suspect]
     Active Substance: ZICONOTIDE ACETATE
     Dosage: 1.25MCG/24H
     Route: 037
     Dates: start: 20240304
  4. METHADONE [Concomitant]
     Active Substance: METHADONE HYDROCHLORIDE
     Indication: Product used for unknown indication
     Dosage: 35MG/8H
     Route: 065

REACTIONS (3)
  - Craniocerebral injury [Unknown]
  - Syncope [Unknown]
  - Generalised tonic-clonic seizure [Unknown]
